FAERS Safety Report 6907353-0 (Version None)
Quarter: 2010Q3

REPORT INFORMATION
  Report Type: 
  Country: None (occurrence: None)
  Receive Date: 20100802
  Receipt Date: 20100717
  Transmission Date: 20110219
  Serious: Yes (Hospitalization, Other)
  Sender: FDA-Public Use
  Company Number: 2010R3-36332

PATIENT
  Age: 66 Year
  Sex: Male

DRUGS (2)
  1. CIPROFLAXACIN [Suspect]
     Indication: MYCOBACTERIUM ULCERANS INFECTION
     Dosage: 500MG, BID
  2. RIFAMPIN (RIFADIN) [Suspect]
     Indication: MYCOBACTERIUM ULCERANS INFECTION
     Dosage: 300 MG, BID

REACTIONS (5)
  - BACTERIAL INFECTION [None]
  - CELLULITIS [None]
  - GENERAL PHYSICAL HEALTH DETERIORATION [None]
  - JOINT SWELLING [None]
  - PARADOXICAL DRUG REACTION [None]
